FAERS Safety Report 7644892-1 (Version None)
Quarter: 2011Q3

REPORT INFORMATION
  Report Type: 
  Country: None (occurrence: None)
  Receive Date: 20110729
  Receipt Date: 20110722
  Transmission Date: 20111222
  Serious: Yes (Hospitalization)
  Sender: FDA-Public Use
  Company Number: AU-ROCHE-786960

PATIENT
  Sex: Male
  Weight: 77.9 kg

DRUGS (11)
  1. DEXAMETHASONE [Concomitant]
     Indication: PROPHYLAXIS
     Route: 048
     Dates: start: 20110131, end: 20110312
  2. TROPISETRON [Concomitant]
     Indication: PROPHYLAXIS
     Route: 048
     Dates: start: 20110131, end: 20110312
  3. LACTULOSE [Concomitant]
     Indication: CONSTIPATION
     Dosage: FREQUENCY : TDS PRN
     Route: 048
  4. OXYCODONE HCL [Concomitant]
     Indication: PAIN
     Route: 048
     Dates: start: 20110601
  5. WARFARIN SODIUM [Concomitant]
     Indication: THROMBOSIS PROPHYLAXIS
     Route: 048
  6. CAPECITABINE [Suspect]
     Indication: RECTAL CANCER
     Dosage: 825 MG/M2 BID D1-33 W/O WEEKENDS+OPTIONAL BOOST
     Route: 048
     Dates: start: 20110131
  7. OXALIPLATIN [Suspect]
     Indication: RECTAL CANCER
     Dosage: 50 MG/M2. ON D1,8,15,22 AND 10. LAST DOSE PRIOR TYO SAE:28 FEB 2011
     Route: 042
     Dates: start: 20110131
  8. CAPECITABINE [Suspect]
     Dosage: D1-D15 OF 3 WEEK CYCLE. LAST DOSE PRIOR TO SAE: 15 FEBRUARY 2011.
     Route: 048
     Dates: start: 20110204
  9. OXALIPLATIN [Suspect]
     Dosage: ON D1 OF 3 WEEK CYCLE. LAST DOSE PRIOR TO SAE: 02 JUNE 2011
     Route: 042
     Dates: start: 20110204
  10. ACETAMINOPHEN [Concomitant]
     Indication: PAIN
     Route: 048
     Dates: start: 20110601
  11. MOVIPREP [Concomitant]
     Indication: CONSTIPATION
     Dosage: FORM : SACHET FREQUENCY : BD PRN
     Route: 048

REACTIONS (1)
  - GALLBLADDER OBSTRUCTION [None]
